FAERS Safety Report 14419807 (Version 1)
Quarter: 2018Q1

REPORT INFORMATION
  Report Type: Spontaneous
  Country: US (occurrence: US)
  Receive Date: 20180122
  Receipt Date: 20180122
  Transmission Date: 20180509
  Serious: No
  Sender: FDA-Public Use
  Company Number: US-MYLANLABS-2018M1004126

PATIENT
  Age: 62 Year
  Sex: Male
  Weight: 102 kg

DRUGS (2)
  1. LIDOCAINE. [Suspect]
     Active Substance: LIDOCAINE
     Indication: NECK PAIN
     Dosage: 1 UNK, UNK
     Route: 003
     Dates: start: 20180102
  2. LIDOCAINE. [Suspect]
     Active Substance: LIDOCAINE
     Indication: BACK PAIN

REACTIONS (4)
  - No adverse event [Unknown]
  - Off label use [Unknown]
  - Product adhesion issue [Not Recovered/Not Resolved]
  - Product quality issue [Not Recovered/Not Resolved]

NARRATIVE: CASE EVENT DATE: 20180102
